FAERS Safety Report 18498248 (Version 1)
Quarter: 2020Q4

REPORT INFORMATION
  Report Type: Spontaneous
  Country: US (occurrence: US)
  Receive Date: 20201112
  Receipt Date: 20201112
  Transmission Date: 20210114
  Serious: No
  Sender: FDA-Public Use
  Company Number: NVSC2020US298857

PATIENT
  Sex: Male

DRUGS (6)
  1. AFINITOR [Suspect]
     Active Substance: EVEROLIMUS
     Indication: PRODUCT USED FOR UNKNOWN INDICATION
     Dosage: UNK
     Route: 065
  2. TYLENOL [Concomitant]
     Active Substance: ACETAMINOPHEN
     Indication: PRODUCT USED FOR UNKNOWN INDICATION
     Route: 065
  3. MULTI VITAMIN [Concomitant]
     Active Substance: VITAMINS
     Indication: PRODUCT USED FOR UNKNOWN INDICATION
     Route: 065
  4. IRON COMPLEX [Concomitant]
     Indication: PRODUCT USED FOR UNKNOWN INDICATION
     Route: 065
  5. LENVIMA [Suspect]
     Active Substance: LENVATINIB
     Indication: RENAL CANCER
     Dosage: 14 MG, QD
     Route: 065
     Dates: start: 20201024
  6. CABOMETYX [Suspect]
     Active Substance: CABOZANTINIB S-MALATE
     Indication: PRODUCT USED FOR UNKNOWN INDICATION
     Route: 065

REACTIONS (9)
  - Fatigue [Unknown]
  - Dysuria [Unknown]
  - Pyrexia [Unknown]
  - Pain [Unknown]
  - Pain in extremity [Unknown]
  - Diarrhoea [Unknown]
  - Night sweats [Unknown]
  - Chills [Unknown]
  - Dyspnoea [Unknown]
